FAERS Safety Report 7703081-2 (Version None)
Quarter: 2011Q3

REPORT INFORMATION
  Report Type: 
  Country: None (occurrence: None)
  Receive Date: 20110823
  Receipt Date: 20110817
  Transmission Date: 20111222
  Serious: Yes (Hospitalization)
  Sender: FDA-Public Use
  Company Number: BR-ABBOTT-11P-020-0847700-00

PATIENT
  Sex: Male
  Weight: 101 kg

DRUGS (4)
  1. PREDNISOLONE [Concomitant]
     Indication: ARTHRITIS
     Route: 048
     Dates: start: 20070101
  2. METHOTREXATE [Concomitant]
     Indication: ARTHRITIS
     Route: 048
     Dates: start: 20070101
  3. HUMIRA [Suspect]
     Indication: PRODUCT USED FOR UNKNOWN INDICATION
     Route: 058
     Dates: end: 20110802
  4. METHOTREXATE [Concomitant]
     Route: 048

REACTIONS (8)
  - PYREXIA [None]
  - PNEUMONIA [None]
  - INFECTION [None]
  - GASTROINTESTINAL INFECTION [None]
  - PAIN [None]
  - DIARRHOEA [None]
  - HAEMORRHOIDS [None]
  - HYPOAESTHESIA [None]
